FAERS Safety Report 21947504 (Version 6)
Quarter: 2023Q2

REPORT INFORMATION
  Report Type: Report from Study
  Country: CO (occurrence: CO)
  Receive Date: 20230202
  Receipt Date: 20230417
  Transmission Date: 20230721
  Serious: Yes (Life-Threatening, Hospitalization, Other)
  Sender: FDA-Public Use
  Company Number: CO-UCBSA-2023005008

PATIENT
  Age: 34 Year
  Sex: Female
  Weight: 47 kg

DRUGS (3)
  1. CERTOLIZUMAB PEGOL [Suspect]
     Active Substance: CERTOLIZUMAB PEGOL
     Indication: Ankylosing spondylitis
     Dosage: 400 MILLIGRAM, EV 4 WEEKS
     Route: 058
     Dates: start: 20220826, end: 20221223
  2. ACETAMINOPHEN [Concomitant]
     Active Substance: ACETAMINOPHEN
     Indication: Product used for unknown indication
     Dosage: 500 MILLIGRAM, 3X/DAY (TID)
     Route: 048
  3. OMEPRAZOL A [Concomitant]
     Indication: Gastritis
     Dosage: 40 MILLIGRAM, ONCE DAILY (QD)
     Route: 048

REACTIONS (9)
  - Suicide attempt [Recovered/Resolved]
  - Disinfectant poisoning [Recovered/Resolved]
  - Infection [Unknown]
  - Hepatic mass [Recovering/Resolving]
  - Pleural effusion [Recovered/Resolved]
  - Aspiration pleural cavity [Recovered/Resolved]
  - Tuberculosis [Recovering/Resolving]
  - Biopsy [Unknown]
  - Mass [Recovering/Resolving]

NARRATIVE: CASE EVENT DATE: 20221201
